FAERS Safety Report 15106458 (Version 2)
Quarter: 2018Q3

REPORT INFORMATION
  Report Type: Report from Study
  Country: CO (occurrence: CO)
  Receive Date: 20180704
  Receipt Date: 20180724
  Transmission Date: 20181010
  Serious: Yes (Other)
  Sender: FDA-Public Use
  Company Number: PHHY2018CO033532

PATIENT
  Sex: Female
  Weight: 60 kg

DRUGS (1)
  1. AFINITOR [Suspect]
     Active Substance: EVEROLIMUS
     Indication: BREAST CANCER
     Dosage: 10 MG, QD
     Route: 048

REACTIONS (4)
  - Pleural effusion [Unknown]
  - Cough [Unknown]
  - Respiratory arrest [Unknown]
  - Pulmonary oedema [Unknown]
